FAERS Safety Report 5063602-8 (Version None)
Quarter: 2006Q3

REPORT INFORMATION
  Report Type: 
  Country: None (occurrence: None)
  Receive Date: 20060727
  Receipt Date: 20060720
  Transmission Date: 20061208
  Serious: Yes (Other)
  Sender: FDA-Public Use
  Company Number: CH-ROCHE-456302

PATIENT
  Age: 10 Month
  Sex: Female
  Weight: 7 kg

DRUGS (1)
  1. ROCEPHIN [Suspect]
     Route: 042
     Dates: start: 20060617, end: 20060617

REACTIONS (4)
  - ANAPHYLACTIC SHOCK [None]
  - TACHYCARDIA [None]
  - TYPE I HYPERSENSITIVITY [None]
  - VOMITING [None]
